FAERS Safety Report 5580393-2 (Version None)
Quarter: 2008Q1

REPORT INFORMATION
  Report Type: 
  Country: None (occurrence: None)
  Receive Date: 20080103
  Receipt Date: 20070711
  Transmission Date: 20080703
  Serious: Yes (Hospitalization)
  Sender: FDA-Public Use
  Company Number: US-MERCK-0707USA01797

PATIENT
  Age: 22 Year
  Sex: Male

DRUGS (5)
  1. CANCIDAS [Suspect]
     Indication: FUNGAL INFECTION
     Route: 042
  2. AMPHOTERICIN B [Concomitant]
     Route: 042
  3. ITRACONAZOLE [Concomitant]
     Route: 065
  4. VORICONAZOLE [Concomitant]
     Route: 048
  5. POSACONAZOLE [Concomitant]
     Route: 065

REACTIONS (4)
  - DRUG RESISTANCE [None]
  - PNEUMONIA [None]
  - SPINAL DISORDER [None]
  - TREATMENT NONCOMPLIANCE [None]
